FAERS Safety Report 18359853 (Version 5)
Quarter: 2023Q1

REPORT INFORMATION
  Report Type: Spontaneous
  Country: GB (occurrence: GB)
  Receive Date: 20201008
  Receipt Date: 20230208
  Transmission Date: 20230418
  Serious: Yes (Life-Threatening, Hospitalization, Other)
  Sender: FDA-Public Use
  Company Number: None

PATIENT
  Age: 29 Year
  Sex: Male

DRUGS (16)
  1. METHYLPREDNISOLONE [Suspect]
     Active Substance: METHYLPREDNISOLONE
     Indication: Autoimmune disorder
     Dosage: 500 MG, 1X/DAY
     Route: 048
     Dates: start: 20200820, end: 202008
  2. CLOBAZAM [Suspect]
     Active Substance: CLOBAZAM
     Indication: Temporal lobe epilepsy
     Dosage: 30 MG, DAILY (10 MG IN AM, 20 MG IN PM)
     Dates: start: 20200822
  3. CLOBAZAM [Suspect]
     Active Substance: CLOBAZAM
     Indication: Partial seizures
     Dosage: 30 MG, DAILY (10 MG IN AM, 20 MG IN PM)
     Route: 048
     Dates: start: 20200823, end: 20200823
  4. CLOBAZAM [Suspect]
     Active Substance: CLOBAZAM
     Dosage: UNK
     Dates: start: 20200823, end: 20200823
  5. FYCOMPA [Suspect]
     Active Substance: PERAMPANEL
     Indication: Temporal lobe epilepsy
     Dosage: 2 MG, DAILY
     Route: 048
     Dates: start: 202001, end: 202005
  6. FYCOMPA [Suspect]
     Active Substance: PERAMPANEL
     Indication: Partial seizures
     Dosage: 6 MG, 1X/DAY
     Route: 048
     Dates: start: 20200128, end: 20200823
  7. FYCOMPA [Suspect]
     Active Substance: PERAMPANEL
     Indication: Epilepsy
     Dosage: 4 MG, 1X/DAY
     Route: 048
     Dates: start: 202005, end: 202006
  8. FYCOMPA [Suspect]
     Active Substance: PERAMPANEL
     Dosage: 8 MG, DAILY
     Route: 048
     Dates: start: 202006, end: 202007
  9. FYCOMPA [Suspect]
     Active Substance: PERAMPANEL
     Dosage: 6 MG, 1X/DAY
     Dates: start: 202007, end: 20200822
  10. FYCOMPA [Suspect]
     Active Substance: PERAMPANEL
     Dosage: UNK
     Route: 048
     Dates: start: 20200823, end: 20200823
  11. ALCOHOL [Suspect]
     Active Substance: ALCOHOL
     Dosage: UNK
     Dates: start: 20200823, end: 20200823
  12. BRIVARACETAM [Suspect]
     Active Substance: BRIVARACETAM
     Indication: Temporal lobe epilepsy
     Dosage: 100 MG, 2X/DAY
  13. BRIVARACETAM [Suspect]
     Active Substance: BRIVARACETAM
     Indication: Partial seizures
  14. ESLICARBAZEPINE ACETATE [Concomitant]
     Active Substance: ESLICARBAZEPINE ACETATE
     Indication: Temporal lobe epilepsy
     Dosage: 400 MG IN AM, 800 MG IN PM
  15. ESLICARBAZEPINE ACETATE [Concomitant]
     Active Substance: ESLICARBAZEPINE ACETATE
     Indication: Partial seizures
  16. PREDNISOLONE [Concomitant]
     Active Substance: PREDNISOLONE
     Dosage: UNK

REACTIONS (12)
  - Intentional overdose [Recovered/Resolved]
  - Suicide attempt [Recovered/Resolved]
  - Suicidal ideation [Recovered/Resolved with Sequelae]
  - Psychotic disorder [Recovered/Resolved]
  - Psychotic disorder [Recovered/Resolved]
  - Hallucination, auditory [Recovering/Resolving]
  - Depressed level of consciousness [Recovered/Resolved]
  - Abnormal behaviour [Recovered/Resolved]
  - Somnolence [Recovering/Resolving]
  - Anger [Recovered/Resolved]
  - Memory impairment [Recovered/Resolved]
  - Mental disorder [Recovering/Resolving]

NARRATIVE: CASE EVENT DATE: 20200501
